FAERS Safety Report 15312086 (Version 1)
Quarter: 2018Q4

REPORT INFORMATION
  Report Type: Spontaneous
  Country: US (occurrence: US)
  Receive Date: 20180823
  Receipt Date: 20180823
  Transmission Date: 20190204
  Serious: No
  Sender: FDA-Public Use
  Company Number: US-009507513-1808USA005678

PATIENT
  Age: 68 Year
  Sex: Male
  Weight: 70 kg

DRUGS (1)
  1. BETAMETHASONE DIPROPIONATE (+) SALICYLIC ACID [Suspect]
     Active Substance: BETAMETHASONE DIPROPIONATE\SALICYLIC ACID
     Indication: NEOPLASM SKIN
     Dosage: UNK
     Route: 061

REACTIONS (4)
  - Expired device used [Unknown]
  - Therapeutic response unexpected [Unknown]
  - Device use issue [Unknown]
  - Product use complaint [Unknown]
